FAERS Safety Report 18922656 (Version 1)
Quarter: 2021Q1

REPORT INFORMATION
  Report Type: Spontaneous
  Country: US (occurrence: US)
  Receive Date: 20210222
  Receipt Date: 20210222
  Transmission Date: 20210420
  Serious: Yes (Death)
  Sender: FDA-Public Use
  Company Number: US-FRESENIUS KABI-FK202101582

PATIENT
  Age: 51 Year
  Sex: Female

DRUGS (4)
  1. MELPHALAN. [Suspect]
     Active Substance: MELPHALAN
     Indication: MYELOID LEUKAEMIA
     Dosage: AS CONDITIONING AGENTS FOR MATCHED UNRELATED DONOR PBSCT WAS CONDUCTED 1 YEAR BEFORE PRESENTATION
     Route: 065
  2. FLUDARABINE [Suspect]
     Active Substance: FLUDARABINE PHOSPHATE
     Indication: MYELOID LEUKAEMIA
     Dosage: AS CONDITIONING AGENTS FOR MATCHED UNRELATED DONOR PBSCT WAS CONDUCTED 1 YEAR BEFORE PRESENTATION
     Route: 065
  3. FLUDARABINE [Suspect]
     Active Substance: FLUDARABINE PHOSPHATE
     Indication: MYELODYSPLASTIC SYNDROME
  4. MELPHALAN. [Suspect]
     Active Substance: MELPHALAN
     Indication: MYELODYSPLASTIC SYNDROME

REACTIONS (1)
  - Graft versus host disease [Fatal]
